APPROVED DRUG PRODUCT: ENTACAPONE
Active Ingredient: ENTACAPONE
Strength: 200MG
Dosage Form/Route: TABLET;ORAL
Application: A212601 | Product #001 | TE Code: AB
Applicant: ALEMBIC PHARMACEUTICALS LTD
Approved: Jan 4, 2022 | RLD: No | RS: No | Type: RX